FAERS Safety Report 10979798 (Version 2)
Quarter: 2015Q2

REPORT INFORMATION
  Report Type: Report from Study
  Country: US (occurrence: US)
  Receive Date: 20150402
  Receipt Date: 20150413
  Transmission Date: 20150821
  Serious: Yes (Hospitalization)
  Sender: FDA-Public Use
  Company Number: US-GILEAD-2015-0146647

PATIENT
  Age: 80 Year
  Sex: Male

DRUGS (1)
  1. IDELALISIB [Suspect]
     Active Substance: IDELALISIB
     Indication: LYMPHOMA
     Dosage: 150 MG, UNK
     Route: 048
     Dates: start: 20150207

REACTIONS (6)
  - Oedema [Unknown]
  - Diarrhoea [Unknown]
  - Eye irritation [Unknown]
  - Haemoptysis [Unknown]
  - Burning sensation [Unknown]
  - Rash generalised [Unknown]
